FAERS Safety Report 11632406 (Version 2)
Quarter: 2015Q4

REPORT INFORMATION
  Report Type: Spontaneous
  Country: GB (occurrence: GB)
  Receive Date: 20151015
  Receipt Date: 20151020
  Transmission Date: 20160304
  Serious: Yes (Other)
  Sender: FDA-Public Use
  Company Number: GB-SA-2014SA114633

PATIENT
  Age: 74 Year
  Sex: Female
  Weight: 65 kg

DRUGS (6)
  1. CODEINE [Concomitant]
     Active Substance: CODEINE
     Dosage: STRENGTH:30 MG?THERAPY WAS DISCONTINUED 5 DAYS AGO.
  2. TRAMADOL. [Concomitant]
     Active Substance: TRAMADOL
     Dosage: STRENGTH:50 MG?FREQUENCY:4-6 HOURS
  3. RIFINAH [Suspect]
     Active Substance: ISONIAZID\RIFAMPIN
     Indication: TUBERCULOSIS
     Dosage: HIGH DOSE
     Route: 048
     Dates: start: 201403
  4. NAPROXEN. [Concomitant]
     Active Substance: NAPROXEN
     Dosage: STRENGTH 250 MG
  5. DIAZEPAM. [Concomitant]
     Active Substance: DIAZEPAM
     Dosage: STRENGTH:2 MG
  6. RIFINAH [Suspect]
     Active Substance: ISONIAZID\RIFAMPIN
     Indication: TUBERCULOSIS
     Dosage: MAINTENANCE DOSE
     Route: 048
     Dates: end: 201409

REACTIONS (5)
  - Gait disturbance [Unknown]
  - Neuropathy peripheral [Unknown]
  - Pain [Unknown]
  - Sarcoidosis [Unknown]
  - Hypoaesthesia [Unknown]

NARRATIVE: CASE EVENT DATE: 201509
